FAERS Safety Report 16065623 (Version 10)
Quarter: 2024Q3

REPORT INFORMATION
  Report Type: Spontaneous
  Country: BR (occurrence: BR)
  Receive Date: 20190313
  Receipt Date: 20240722
  Transmission Date: 20241017
  Serious: Yes (Other)
  Sender: GLAXOSMITHKLINE
  Company Number: BR-GLAXOSMITHKLINE-BR2018GSK006043

PATIENT

DRUGS (2)
  1. BENLYSTA [Suspect]
     Active Substance: BELIMUMAB
     Indication: Systemic lupus erythematosus
     Dosage: UNK,2X40+1X1200MG
     Route: 042
     Dates: start: 20170925
  2. BENLYSTA [Suspect]
     Active Substance: BELIMUMAB
     Dosage: UNK, Q4W, 2X400+1X120MG
     Route: 042

REACTIONS (6)
  - Surgery [Recovered/Resolved]
  - Inflammation [Recovered/Resolved]
  - COVID-19 [Recovered/Resolved]
  - Product dose omission issue [Unknown]
  - Product availability issue [Unknown]
  - Inappropriate schedule of product administration [Unknown]

NARRATIVE: CASE EVENT DATE: 20210501
